FAERS Safety Report 24359043 (Version 1)
Quarter: 2024Q3

REPORT INFORMATION
  Report Type: Spontaneous
  Country: US (occurrence: US)
  Receive Date: 20240924
  Receipt Date: 20240924
  Transmission Date: 20241017
  Serious: Yes (Death)
  Sender: SUNOVION
  Company Number: US-SMPA-2024SPA002584

PATIENT

DRUGS (1)
  1. GEMTESA [Suspect]
     Active Substance: VIBEGRON
     Dosage: UNK
     Route: 065

REACTIONS (1)
  - Multimorbidity [Fatal]

NARRATIVE: CASE EVENT DATE: 20240906
